FAERS Safety Report 25585182 (Version 1)
Quarter: 2025Q3

REPORT INFORMATION
  Report Type: Spontaneous
  Country: US (occurrence: None)
  Receive Date: 20250718
  Receipt Date: 20250718
  Transmission Date: 20251021
  Serious: No
  Sender: FDA-CTU
  Company Number: None

PATIENT
  Age: 65 Year
  Sex: Female
  Weight: 51.75 kg

DRUGS (1)
  1. CVS EYEWASH [Suspect]
     Active Substance: WATER
     Indication: Eye disorder
     Route: 050
     Dates: start: 20250718, end: 20250718

REACTIONS (3)
  - Eye inflammation [None]
  - Ocular hyperaemia [None]
  - Vision blurred [None]

NARRATIVE: CASE EVENT DATE: 20250718
